FAERS Safety Report 8034079-5 (Version None)
Quarter: 2012Q1

REPORT INFORMATION
  Report Type: 
  Country: None (occurrence: None)
  Receive Date: 20120110
  Receipt Date: 20120104
  Transmission Date: 20120608
  Serious: No
  Sender: FDA-Public Use
  Company Number: US-B.I. PHARMACEUTICALS,INC./RIDGEFIELD-2011-BP-10317BP

PATIENT
  Sex: Male
  Weight: 63.5 kg

DRUGS (8)
  1. CARVEDILOL [Concomitant]
     Dosage: 25 MG
  2. PRADAXA [Suspect]
     Indication: ANTICOAGULANT THERAPY
  3. PRAVASTATIN [Concomitant]
     Dosage: 40 MG
  4. FUROSEMIDE [Concomitant]
     Dosage: 20 MG
  5. WARFARIN SODIUM [Concomitant]
     Dosage: 2 MG
  6. PRADAXA [Suspect]
     Indication: ATRIAL FIBRILLATION
     Dosage: 300 MG
     Route: 048
     Dates: start: 20110101
  7. DIGOXIN [Concomitant]
     Dosage: 0.125 MG
  8. LISINOPRIL [Concomitant]
     Dosage: 5 MG

REACTIONS (6)
  - VITREOUS FLOATERS [None]
  - VISION BLURRED [None]
  - HEADACHE [None]
  - HEART RATE INCREASED [None]
  - DYSPNOEA [None]
  - DIZZINESS [None]
